FAERS Safety Report 7467963-1 (Version None)
Quarter: 2011Q2

REPORT INFORMATION
  Report Type: 
  Country: None (occurrence: None)
  Receive Date: 20110509
  Receipt Date: 20110222
  Transmission Date: 20111010
  Serious: No
  Sender: FDA-Public Use
  Company Number: US-ALEXION-A201100230

PATIENT
  Sex: Male

DRUGS (3)
  1. PREDNISONE [Concomitant]
     Dosage: 15 MG, QD
     Route: 048
  2. FOLIC ACID [Concomitant]
     Dosage: 1 MG, QD
  3. SOLIRIS [Suspect]
     Indication: PAROXYSMAL NOCTURNAL HAEMOGLOBINURIA
     Dosage: 900 MG, Q2W
     Route: 042
     Dates: start: 20090701

REACTIONS (7)
  - CONDITION AGGRAVATED [None]
  - CHROMATURIA [None]
  - SLEEP APNOEA SYNDROME [None]
  - NASOPHARYNGITIS [None]
  - FATIGUE [None]
  - INFLUENZA [None]
  - DISTURBANCE IN ATTENTION [None]
